FAERS Safety Report 9292345 (Version 1)
Quarter: 2013Q2

REPORT INFORMATION
  Report Type: Spontaneous
  Country: US (occurrence: US)
  Receive Date: 20130516
  Receipt Date: 20130516
  Transmission Date: 20140414
  Serious: Yes (Hospitalization)
  Sender: FDA-Public Use
  Company Number: US-BAYER-2013-060007

PATIENT
  Age: 38 Year
  Sex: Female
  Weight: 100 kg

DRUGS (15)
  1. GIANVI [Suspect]
  2. YAZ [Suspect]
  3. TETRACYCLINE [Concomitant]
     Dosage: 250 MG, UNK
  4. CITALOPRAM [Concomitant]
     Dosage: 40 MG, UNK
  5. METFORMIN [Concomitant]
     Dosage: 500 MG, UNK
  6. SYNTHROID [Concomitant]
     Dosage: 88 ?G, UNK
  7. TOPIRAMATE [Concomitant]
     Dosage: 200 MG, UNK
  8. TERCONAZOLE [Concomitant]
     Dosage: 0.8 %, UNK
  9. CLOTRIMAZOLE W/BETAMETHASONE DIPROPIONAT [Concomitant]
  10. VITAMIN D [Concomitant]
     Dosage: 1.25 MG, UNK
  11. FLUCONAZOLE [Concomitant]
     Dosage: 150 MG, UNK
  12. SEROQUEL [Concomitant]
     Dosage: 100 MG, UNK
  13. OMEPRAZOLE [Concomitant]
     Dosage: 20 MG, QD
  14. SPIRONOLACTONE [Concomitant]
     Dosage: 50 MG, UNK
  15. VITAMIN D2 [Concomitant]

REACTIONS (4)
  - Pulmonary embolism [Recovered/Resolved]
  - Deep vein thrombosis [Recovered/Resolved]
  - Pain [None]
  - Pulmonary infarction [None]
